FAERS Safety Report 10409143 (Version 2)
Quarter: 2014Q3

REPORT INFORMATION
  Report Type: Spontaneous
  Country: CO (occurrence: None)
  Receive Date: 20140822
  Receipt Date: 20140826
  Transmission Date: 20150326
  Serious: Yes (Other)
  Sender: FDA-Public Use
  Company Number: 2014-20186

PATIENT
  Age: 80 Year
  Sex: Male

DRUGS (1)
  1. EYLEA [Suspect]
     Active Substance: AFLIBERCEPT
     Indication: AGE-RELATED MACULAR DEGENERATION
     Dosage: INTRAOCULAR
     Dates: start: 20140117

REACTIONS (3)
  - Blindness transient [None]
  - Retinal oedema [None]
  - Product lot number issue [None]

NARRATIVE: CASE EVENT DATE: 20140718
